FAERS Safety Report 15508777 (Version 1)
Quarter: 2018Q4

REPORT INFORMATION
  Report Type: Spontaneous
  Country: US (occurrence: US)
  Receive Date: 20181016
  Receipt Date: 20181016
  Transmission Date: 20190205
  Serious: No
  Sender: FDA-Public Use
  Company Number: US-AMGEN-USASP2018080758

PATIENT
  Sex: Male
  Weight: 71.8 kg

DRUGS (2)
  1. SENSIPAR [Suspect]
     Active Substance: CINACALCET HYDROCHLORIDE
     Indication: BLOOD PARATHYROID HORMONE INCREASED
     Dosage: UNK (30 OR 60MG), QD
     Route: 048
  2. SENSIPAR [Suspect]
     Active Substance: CINACALCET HYDROCHLORIDE
     Dosage: 90 MG (THREE TIMES IN WEEK)
     Route: 048
     Dates: end: 20180309

REACTIONS (3)
  - Treatment noncompliance [Unknown]
  - Vomiting [Recovered/Resolved]
  - Nausea [Recovered/Resolved]
